FAERS Safety Report 18887699 (Version 4)
Quarter: 2021Q2

REPORT INFORMATION
  Report Type: Report from Study
  Country: US (occurrence: US)
  Receive Date: 20210212
  Receipt Date: 20210419
  Transmission Date: 20210717
  Serious: Yes (Hospitalization, Other)
  Sender: FDA-Public Use
  Company Number: US-JNJFOC-20210212980

PATIENT
  Age: 27 Year
  Sex: Male
  Weight: 91.8 kg

DRUGS (2)
  1. MACITENTAN [Suspect]
     Active Substance: MACITENTAN
     Indication: PULMONARY ARTERIAL HYPERTENSION
     Route: 048
  2. TADALAFIL. [Concomitant]
     Active Substance: TADALAFIL

REACTIONS (7)
  - Cardiac arrest [Unknown]
  - PCO2 increased [Unknown]
  - Electrolyte imbalance [Unknown]
  - Renal disorder [Unknown]
  - Vocal cord dysfunction [Unknown]
  - Pneumonia aspiration [Unknown]
  - Staphylococcal infection [Unknown]

NARRATIVE: CASE EVENT DATE: 20201226
